FAERS Safety Report 8183792-8 (Version None)
Quarter: 2012Q1

REPORT INFORMATION
  Report Type: 
  Country: None (occurrence: None)
  Receive Date: 20120305
  Receipt Date: 20120301
  Transmission Date: 20120608
  Serious: Yes (Other)
  Sender: FDA-Public Use
  Company Number: PHHY2011CA28239

PATIENT
  Sex: Male

DRUGS (11)
  1. ACTONEL [Concomitant]
  2. ARICEPT [Concomitant]
  3. EXJADE [Suspect]
     Indication: MYELODYSPLASTIC SYNDROME
     Dosage: 1000 MG, QD
     Route: 048
     Dates: start: 20110101
  4. PANTOPRAZOLE [Concomitant]
     Dosage: 40 MG, QD
  5. VITAMIN D [Concomitant]
  6. PREDNISONE TAB [Concomitant]
     Indication: POLYCHONDRITIS
     Dosage: 10 MG, QD
  7. EXJADE [Suspect]
     Dosage: 1750 MG, UNK
     Route: 048
  8. METOPROLOL SUCCINATE [Concomitant]
     Indication: ATRIAL FIBRILLATION
     Dosage: 75 MG, BID
  9. MULTI-VITAMINS [Concomitant]
  10. CIPRO [Concomitant]
     Dosage: 1 DF, QOD
  11. CALCIUM [Concomitant]

REACTIONS (4)
  - CONSTIPATION [None]
  - GASTROINTESTINAL MOTILITY DISORDER [None]
  - EAR NEOPLASM MALIGNANT [None]
  - HAEMOGLOBIN DECREASED [None]
